FAERS Safety Report 24163577 (Version 3)
Quarter: 2024Q3

REPORT INFORMATION
  Report Type: Spontaneous
  Country: US (occurrence: US)
  Receive Date: 20240801
  Receipt Date: 20240910
  Transmission Date: 20241017
  Serious: No
  Sender: PFIZER
  Company Number: US-PFIZER INC-202400225164

PATIENT
  Age: 80 Year
  Sex: Male
  Weight: 77.098 kg

DRUGS (5)
  1. PAXLOVID [Suspect]
     Active Substance: NIRMATRELVIR\RITONAVIR
     Indication: COVID-19 treatment
     Dosage: [NIRMATRELVIR 300 MG]/[RITONAVIR 100 MG]; 2X/DAY
     Route: 048
     Dates: start: 20240714, end: 20240718
  2. SIMVASTATIN [Concomitant]
     Active Substance: SIMVASTATIN
     Indication: Lipids abnormal
     Dosage: 40 MG, 1X/DAY
  3. TERAZOSIN [Concomitant]
     Active Substance: TERAZOSIN HYDROCHLORIDE
     Indication: Nocturia
     Dosage: 1 MG, 1X/DAY
  4. FLUTICASONE [Concomitant]
     Active Substance: FLUTICASONE
     Indication: Hypersensitivity
     Dosage: 50 UG, DAILY X 4 SQUIRTS
  5. ZYRTEC [Concomitant]
     Active Substance: CETIRIZINE HYDROCHLORIDE
     Indication: Hypersensitivity
     Dosage: UNK, 1X/DAY

REACTIONS (3)
  - COVID-19 [Recovered/Resolved with Sequelae]
  - Disease recurrence [Recovered/Resolved with Sequelae]
  - Post-acute COVID-19 syndrome [Unknown]

NARRATIVE: CASE EVENT DATE: 20240101
